FAERS Safety Report 18278093 (Version 1)
Quarter: 2020Q3

REPORT INFORMATION
  Report Type: Spontaneous
  Country: US (occurrence: US)
  Receive Date: 20200917
  Receipt Date: 20200917
  Transmission Date: 20201103
  Serious: No
  Sender: FDA-Public Use
  Company Number: US-CIRCASSIA PHARMACEUTICALS INC-2020US000642

PATIENT
  Age: 84 Year
  Sex: Female

DRUGS (1)
  1. TUDORZA PRESSAIR [Suspect]
     Active Substance: ACLIDINIUM BROMIDE
     Indication: CHRONIC OBSTRUCTIVE PULMONARY DISEASE
     Dosage: 400 UG, BID (ONE PUFF TWICE DAILY)
     Dates: start: 20200123, end: 20200129

REACTIONS (7)
  - Back pain [Unknown]
  - Overdose [Unknown]
  - Drug ineffective [Unknown]
  - Incorrect dose administered by product [Unknown]
  - Renal disorder [Unknown]
  - Urinary tract infection [Unknown]
  - Device malfunction [Unknown]

NARRATIVE: CASE EVENT DATE: 20200129
